FAERS Safety Report 11107878 (Version 1)
Quarter: 2015Q2

REPORT INFORMATION
  Report Type: Spontaneous
  Country: US (occurrence: US)
  Receive Date: 20150512
  Receipt Date: 20150512
  Transmission Date: 20150821
  Serious: No
  Sender: FDA-Public Use
  Company Number: US-BAYER-2015-202680

PATIENT
  Sex: Female

DRUGS (1)
  1. MIDOL [Suspect]
     Active Substance: IBUPROFEN
     Dosage: UNK UNK, BID

REACTIONS (2)
  - Mood swings [Unknown]
  - Abdominal distension [Unknown]
